FAERS Safety Report 16121298 (Version 1)
Quarter: 2019Q1

REPORT INFORMATION
  Report Type: Report from Study
  Country: IT (occurrence: IT)
  Receive Date: 20190327
  Receipt Date: 20190327
  Transmission Date: 20190418
  Serious: Yes (Other)
  Sender: FDA-Public Use
  Company Number: IT-ACCORD-115681

PATIENT
  Age: 55 Year
  Sex: Female

DRUGS (3)
  1. PATROL [Concomitant]
     Active Substance: ACETAMINOPHEN\TRAMADOL HYDROCHLORIDE
     Dosage: STRENGTH :  37.5 MG / 325 MG
  2. METHOTREXATE. [Suspect]
     Active Substance: METHOTREXATE
     Indication: ARTHRITIS REACTIVE
     Route: 058
     Dates: start: 20180127, end: 20181130
  3. DELTACORTENE [Concomitant]
     Active Substance: PREDNISONE
     Dosage: STRENGTH 5 MG

REACTIONS (1)
  - Therapy non-responder [Unknown]

NARRATIVE: CASE EVENT DATE: 20181130
